FAERS Safety Report 19814856 (Version 1)
Quarter: 2021Q3

REPORT INFORMATION
  Report Type: Spontaneous
  Country: US (occurrence: US)
  Receive Date: 20210910
  Receipt Date: 20210910
  Transmission Date: 20211014
  Serious: Yes (Other)
  Sender: FDA-Public Use
  Company Number: None

PATIENT
  Age: 52 Year
  Sex: Female
  Weight: 73.8 kg

DRUGS (1)
  1. METRONIDAZOLE 500 MG TABLET [Suspect]
     Active Substance: METRONIDAZOLE
     Dosage: ?          QUANTITY:1 TABLET(S);?
     Route: 048
     Dates: start: 20210909, end: 20210910

REACTIONS (4)
  - Product quality issue [None]
  - Product physical issue [None]
  - Renal pain [None]
  - Taste disorder [None]

NARRATIVE: CASE EVENT DATE: 20210909
